FAERS Safety Report 23345663 (Version 1)
Quarter: 2023Q4

REPORT INFORMATION
  Report Type: Spontaneous
  Country: US (occurrence: US)
  Receive Date: 20231228
  Receipt Date: 20231228
  Transmission Date: 20240109
  Serious: No
  Sender: FDA-Public Use
  Company Number: US-Horizon-ACT-0351-2020

PATIENT

DRUGS (1)
  1. ACTIMMUNE [Suspect]
     Active Substance: INTERFERON GAMMA-1B
     Indication: Chronic granulomatous disease
     Dosage: UNK
     Route: 065
     Dates: start: 201911

REACTIONS (3)
  - Night sweats [Recovered/Resolved]
  - Chills [Recovered/Resolved]
  - Headache [Recovered/Resolved]

NARRATIVE: CASE EVENT DATE: 20191101
